FAERS Safety Report 4477400-7 (Version None)
Quarter: 2004Q4

REPORT INFORMATION
  Report Type: 
  Country: None (occurrence: None)
  Receive Date: 20041013
  Receipt Date: 20041004
  Transmission Date: 20050328
  Serious: Yes (Hospitalization, Other)
  Sender: FDA-Public Use
  Company Number: 2004-06-1964

PATIENT
  Age: 47 Year
  Sex: Male

DRUGS (28)
  1. CELESTONE [Suspect]
     Indication: ENCEPHALITIS HERPES
     Dosage: 3-5- 3MG QD ORAL : 5MG QD ORAL : 4MG QD ORAL : 3MG QD ORAL
     Route: 048
     Dates: start: 20040501, end: 20040603
  2. CELESTONE [Suspect]
     Indication: ENCEPHALITIS HERPES
     Dosage: 3-5- 3MG QD ORAL : 5MG QD ORAL : 4MG QD ORAL : 3MG QD ORAL
     Route: 048
     Dates: start: 20040603, end: 20040608
  3. CELESTONE [Suspect]
     Indication: ENCEPHALITIS HERPES
     Dosage: 3-5- 3MG QD ORAL : 5MG QD ORAL : 4MG QD ORAL : 3MG QD ORAL
     Route: 048
     Dates: start: 20040608, end: 20040615
  4. CELESTONE [Suspect]
     Indication: ENCEPHALITIS HERPES
     Dosage: 3-5- 3MG QD ORAL : 5MG QD ORAL : 4MG QD ORAL : 3MG QD ORAL
     Route: 048
     Dates: start: 20040615
  5. SALICYLAMIDE ORAL [Suspect]
     Indication: NASOPHARYNGITIS
     Dosage: 3G/D ORAL
     Route: 048
     Dates: start: 20040612, end: 20040614
  6. LEVOPROME [Suspect]
     Indication: ENCEPHALITIS HERPES
     Dosage: 50-200MG QD ORAL : 50MG , 75MG, 150MG, 200MG
     Route: 048
     Dates: start: 20040428, end: 20040429
  7. LEVOPROME [Suspect]
     Indication: ENCEPHALITIS HERPES
     Dosage: 50-200MG QD ORAL : 50MG , 75MG, 150MG, 200MG
     Route: 048
     Dates: start: 20040430, end: 20040506
  8. LEVOPROME [Suspect]
     Indication: ENCEPHALITIS HERPES
     Dosage: 50-200MG QD ORAL : 50MG , 75MG, 150MG, 200MG
     Route: 048
     Dates: start: 20040507, end: 20040512
  9. LEVOPROME [Suspect]
     Indication: ENCEPHALITIS HERPES
     Dosage: 50-200MG QD ORAL : 50MG , 75MG, 150MG, 200MG
     Route: 048
     Dates: start: 20040429, end: 20040625
  10. LEVOPROME [Suspect]
     Indication: ENCEPHALITIS HERPES
     Dosage: 50-200MG QD ORAL : 50MG , 75MG, 150MG, 200MG
     Route: 048
     Dates: start: 20040513, end: 20040625
  11. AKINETON ORAL [Suspect]
     Indication: ENCEPHALITIS HERPES
     Dosage: 3MG QD ORAL
     Route: 048
     Dates: start: 20040503, end: 20040617
  12. SERENACE ORAL [Suspect]
     Indication: ENCEPHALITIS HERPES
     Dosage: 2-12 - 9MG QD ORAL : 2MG , 6MG , 9MG , 12 MG
     Route: 048
     Dates: start: 20040426, end: 20040502
  13. SERENACE ORAL [Suspect]
     Indication: ENCEPHALITIS HERPES
     Dosage: 2-12 - 9MG QD ORAL : 2MG , 6MG , 9MG , 12 MG
     Route: 048
     Dates: start: 20040503, end: 20040512
  14. SERENACE ORAL [Suspect]
     Indication: ENCEPHALITIS HERPES
     Dosage: 2-12 - 9MG QD ORAL : 2MG , 6MG , 9MG , 12 MG
     Route: 048
     Dates: start: 20040519, end: 20040613
  15. SERENACE ORAL [Suspect]
     Indication: ENCEPHALITIS HERPES
     Dosage: 2-12 - 9MG QD ORAL : 2MG , 6MG , 9MG , 12 MG
     Route: 048
     Dates: start: 20040426, end: 20040617
  16. SERENACE ORAL [Suspect]
     Indication: ENCEPHALITIS HERPES
     Dosage: 2-12 - 9MG QD ORAL : 2MG , 6MG , 9MG , 12 MG
     Route: 048
     Dates: start: 20040614, end: 20040617
  17. ALEVIATIN ORAL [Suspect]
     Indication: ENCEPHALITIS HERPES
     Dosage: 500-300MG QD ORAL : 500MG, 300MG
     Route: 048
     Dates: start: 20040426, end: 20040427
  18. ALEVIATIN ORAL [Suspect]
     Indication: ENCEPHALITIS HERPES
     Dosage: 500-300MG QD ORAL : 500MG, 300MG
     Route: 048
     Dates: start: 20040426, end: 20040625
  19. ALEVIATIN ORAL [Suspect]
     Indication: ENCEPHALITIS HERPES
     Dosage: 500-300MG QD ORAL : 500MG, 300MG
     Route: 048
     Dates: start: 20040428, end: 20040625
  20. SEROQUEL [Suspect]
     Indication: ENCEPHALITIS HERPES
     Dosage: 200-300MG QD ORAL  ; 200 MG, 300 MG
     Route: 048
     Dates: start: 20040517, end: 20040617
  21. SEROQUEL [Suspect]
     Indication: ENCEPHALITIS HERPES
     Dosage: 200-300MG QD ORAL  ; 200 MG, 300 MG
     Route: 048
     Dates: start: 20040520, end: 20040617
  22. SEROQUEL [Suspect]
     Indication: ENCEPHALITIS HERPES
     Dosage: 200-300MG QD ORAL  ; 200 MG, 300 MG
     Route: 048
     Dates: start: 20040517
  23. GASTER ORAL [Suspect]
     Indication: ENCEPHALITIS HERPES
     Dosage: 40MG QD ORAL
     Route: 048
     Dates: start: 20040513, end: 20040616
  24. TEGRETOL [Suspect]
     Indication: ENCEPHALITIS HERPES
     Dosage: 400-600MG QD ORAL  ; 400MG, 600MG
     Route: 048
     Dates: start: 20040501, end: 20040526
  25. TEGRETOL [Suspect]
     Indication: ENCEPHALITIS HERPES
     Dosage: 400-600MG QD ORAL  ; 400MG, 600MG
     Route: 048
     Dates: start: 20040501, end: 20040614
  26. TEGRETOL [Suspect]
     Indication: ENCEPHALITIS HERPES
     Dosage: 400-600MG QD ORAL  ; 400MG, 600MG
     Route: 048
     Dates: start: 20040527, end: 20040614
  27. ARASENA A INJECTABLE [Suspect]
     Indication: ENCEPHALITIS HERPES
     Dosage: 600MG
     Dates: start: 20040521, end: 20040530
  28. CONTRAST DYE INJECTABLE [Suspect]
     Indication: ENCEPHALITIS HERPES
     Dates: start: 20040525

REACTIONS (10)
  - ALANINE AMINOTRANSFERASE INCREASED [None]
  - ASPARTATE AMINOTRANSFERASE INCREASED [None]
  - BLOOD ALKALINE PHOSPHATASE INCREASED [None]
  - BLOOD LACTATE DEHYDROGENASE INCREASED [None]
  - DRUG ERUPTION [None]
  - GAMMA-GLUTAMYLTRANSFERASE INCREASED [None]
  - HEPATIC FUNCTION ABNORMAL [None]
  - LIVER DISORDER [None]
  - LYMPHOCYTE STIMULATION TEST POSITIVE [None]
  - SCAB [None]
